FAERS Safety Report 10574281 (Version 1)
Quarter: 2014Q4

REPORT INFORMATION
  Report Type: Spontaneous
  Country: US (occurrence: US)
  Receive Date: 20141110
  Receipt Date: 20141110
  Transmission Date: 20150529
  Serious: No
  Sender: FDA-Public Use
  Company Number: US-GALDERMA-US14002900

PATIENT
  Age: 46 Year
  Sex: Female

DRUGS (5)
  1. CAPEX [Suspect]
     Active Substance: FLUOCINOLONE ACETONIDE
     Indication: SEBORRHOEIC DERMATITIS
     Dosage: 0.01%
     Route: 061
  2. AVEENO NOURSIH AND DANDRUFF SHAMPOO [Concomitant]
     Indication: SKIN EXFOLIATION
  3. AVEENO NOURSIH AND DANDRUFF SHAMPOO [Concomitant]
     Indication: PRURITUS
     Route: 061
  4. VO5 SHAMPOO [Concomitant]
     Indication: THERAPEUTIC SKIN CARE TOPICAL
     Route: 061
  5. NEUTROGENA CLEAN VOLUME SHAMPOO [Concomitant]
     Indication: THERAPEUTIC SKIN CARE TOPICAL
     Route: 061

REACTIONS (2)
  - Expired product administered [Not Recovered/Not Resolved]
  - Drug ineffective [Not Recovered/Not Resolved]
